FAERS Safety Report 6029348-4 (Version None)
Quarter: 2009Q1

REPORT INFORMATION
  Report Type: 
  Country: None (occurrence: None)
  Receive Date: 20090105
  Receipt Date: 20081223
  Transmission Date: 20090719
  Serious: Yes (Hospitalization)
  Sender: FDA-Public Use
  Company Number: 2008-188308-NL

PATIENT
  Age: 66 Year
  Sex: Male

DRUGS (6)
  1. MIRTAZAPINE [Suspect]
     Indication: MAJOR DEPRESSION
     Dosage: 15 MG/7.5 MG/15 MG/DF ORAL
     Route: 048
     Dates: start: 20081118, end: 20081208
  2. MIRTAZAPINE [Suspect]
     Indication: MAJOR DEPRESSION
     Dosage: 15 MG/7.5 MG/15 MG/DF ORAL
     Route: 048
     Dates: start: 20081209, end: 20081215
  3. MIRTAZAPINE [Suspect]
     Indication: MAJOR DEPRESSION
     Dosage: 15 MG/7.5 MG/15 MG/DF ORAL
     Route: 048
     Dates: start: 20081216, end: 20081217
  4. ARIPIPRAZOLE [Suspect]
     Indication: MAJOR DEPRESSION
     Dosage: 10 MG ORAL
     Route: 048
  5. ALPRAZOLAM [Concomitant]
  6. BUSPIRONE HCL [Concomitant]

REACTIONS (1)
  - INAPPROPRIATE ANTIDIURETIC HORMONE SECRETION [None]
